FAERS Safety Report 8862972 (Version 1)
Quarter: 2012Q4

REPORT INFORMATION
  Report Type: 
  Country: US (occurrence: US)
  Receive Date: 20121026
  Receipt Date: 20121026
  Transmission Date: 20130627
  Serious: No
  Sender: FDA-Public Use
  Company Number: US-ALLERGAN-1204710US

PATIENT
  Age: 57 Year
  Sex: Female

DRUGS (7)
  1. ALPHAGAN P [Suspect]
     Indication: BROKEN BLOOD VESSEL IN EYE
     Dosage: 1 Gtt, bid
     Route: 047
     Dates: start: 201202
  2. ALPHAGAN P [Suspect]
     Indication: ANGLE CLOSURE GLAUCOMA
  3. TRAVATAN [Concomitant]
     Indication: INTRAOCULAR PRESSURE
     Dosage: 1 Gtt, qd
     Route: 047
  4. LISINOPRIL [Concomitant]
     Indication: HYPERTENSION
  5. NORVASC [Concomitant]
     Indication: HYPERTENSION
     Dosage: UNK
  6. METFORMIN [Concomitant]
     Indication: DIABETES
  7. INSULIN [Concomitant]
     Indication: DIABETES

REACTIONS (3)
  - Skin hyperpigmentation [Not Recovered/Not Resolved]
  - Lip dry [Not Recovered/Not Resolved]
  - Chapped lips [Not Recovered/Not Resolved]
